FAERS Safety Report 7605846-4 (Version None)
Quarter: 2011Q3

REPORT INFORMATION
  Report Type: 
  Country: None (occurrence: None)
  Receive Date: 20110705
  Receipt Date: 20110622
  Transmission Date: 20111222
  Serious: Yes (Hospitalization)
  Sender: FDA-Public Use
  Company Number: UTC-007729

PATIENT
  Age: 65 Year
  Sex: Female

DRUGS (4)
  1. ADCIRCA [Concomitant]
  2. COUMADIN [Concomitant]
  3. DIURETICS (DIURETICS) [Concomitant]
  4. TYVASO [Suspect]
     Indication: PULMONARY ARTERIAL HYPERTENSION
     Dosage: 18 TO 54 MICROGRAM (4 IN 1 D) INHALATOIN
     Route: 055
     Dates: start: 20101109

REACTIONS (3)
  - TREATMENT NONCOMPLIANCE [None]
  - PULMONARY OEDEMA [None]
  - PULMONARY ARTERIAL HYPERTENSION [None]
